FAERS Safety Report 9518360 (Version 1)
Quarter: 2013Q3

REPORT INFORMATION
  Report Type: Spontaneous
  Country: US (occurrence: None)
  Receive Date: 20130910
  Receipt Date: 20130910
  Transmission Date: 20140515
  Serious: Yes (Life-Threatening)
  Sender: FDA-Public Use
  Company Number: None

PATIENT
  Age: 52 Year
  Sex: Male
  Weight: 83.92 kg

DRUGS (2)
  1. TEMAZEPAM [Suspect]
     Indication: INSOMNIA
     Dosage: 1 PILL AT BEDTIME TAKEN BY MOUTH
     Route: 048
     Dates: start: 20120411, end: 20121001
  2. DIAZEPAM (DIAZEPAM) (DIAZEPAM) [Suspect]
     Indication: UNEVALUABLE EVENT
     Route: 048
     Dates: start: 20121002, end: 20130201

REACTIONS (8)
  - Suicidal ideation [None]
  - Anxiety [None]
  - Anxiety [None]
  - Dependence [None]
  - Arthralgia [None]
  - Depression [None]
  - Withdrawal syndrome [None]
  - Drug dependence [None]
